FAERS Safety Report 8125251 (Version 7)
Quarter: 2012Q4

REPORT INFORMATION
  Report Type: 
  Country: CA (occurrence: CA)
  Receive Date: 20110907
  Receipt Date: 20121001
  Transmission Date: 20130627
  Serious: Yes (Other)
  Sender: FDA-Public Use
  Company Number: CA-ROCHE-GNE323731

PATIENT
  Age: 62 None
  Sex: Male

DRUGS (2)
  1. XOLAIR [Suspect]
     Indication: ASTHMA
     Dosage: 225 mg,
     Route: 058
     Dates: start: 20060308
  2. XOLAIR [Suspect]
     Route: 065
     Dates: start: 20120125

REACTIONS (15)
  - Renal disorder [Unknown]
  - Lymphadenopathy [Unknown]
  - Abdominal discomfort [Unknown]
  - Urinary retention [Unknown]
  - Abdominal pain [Unknown]
  - Glucose tolerance impaired [Unknown]
  - Lacrimation increased [Unknown]
  - Back pain [Unknown]
  - Weight decreased [Unknown]
  - Pain in extremity [Unknown]
  - Weight increased [Unknown]
  - Nasopharyngitis [Unknown]
  - Abdominal distension [Unknown]
  - Depression [Unknown]
  - Pain [Unknown]
